FAERS Safety Report 8407169-2 (Version None)
Quarter: 2012Q2

REPORT INFORMATION
  Report Type: 
  Country: None (occurrence: None)
  Receive Date: 20120604
  Receipt Date: 20120525
  Transmission Date: 20120825
  Serious: Yes (Hospitalization, Other)
  Sender: FDA-Public Use
  Company Number: PL-ROCHE-1023861

PATIENT
  Sex: Female
  Weight: 67 kg

DRUGS (5)
  1. MABTHERA [Suspect]
     Indication: RHEUMATOID ARTHRITIS
     Route: 042
     Dates: start: 20100921
  2. CONTROLOC (POLAND) [Concomitant]
  3. FOLIC ACID [Concomitant]
  4. MABTHERA [Suspect]
     Route: 042
     Dates: start: 20101006
  5. METHOTREXATE [Concomitant]

REACTIONS (11)
  - RHEUMATOID ARTHRITIS [None]
  - RASH [None]
  - GENITAL INFECTION [None]
  - MALAISE [None]
  - ARTHRALGIA [None]
  - OEDEMA [None]
  - LEUKOPENIA [None]
  - ASTHENIA [None]
  - PERICARDIAL EFFUSION [None]
  - PRURITUS [None]
  - ARRHYTHMIA [None]
